FAERS Safety Report 9177766 (Version 1)
Quarter: 2013Q1

REPORT INFORMATION
  Report Type: Spontaneous
  Country: CO (occurrence: CO)
  Receive Date: 20130321
  Receipt Date: 20130321
  Transmission Date: 20140127
  Serious: Yes (Other)
  Sender: FDA-Public Use
  Company Number: CO-UCBSA-081077

PATIENT
  Age: 84 Year
  Sex: Female

DRUGS (2)
  1. ROTIGOTINE [Suspect]
     Indication: PARKINSON^S DISEASE
     Dosage: 6 MG/24 HR
     Route: 062
     Dates: start: 20120622, end: 20130305
  2. BIPERIDILO [Concomitant]

REACTIONS (1)
  - Cerebrovascular accident [Unknown]
